FAERS Safety Report 9168584 (Version 1)
Quarter: 2013Q1

REPORT INFORMATION
  Report Type: Spontaneous
  Country: US (occurrence: None)
  Receive Date: 20130314
  Receipt Date: 20130314
  Transmission Date: 20140127
  Serious: Yes (Other)
  Sender: FDA-Public Use
  Company Number: None

PATIENT
  Age: 23 Year
  Sex: Female

DRUGS (1)
  1. PIN-X [Suspect]
     Indication: ENTEROBIASIS
     Dates: start: 20130121, end: 20130121

REACTIONS (1)
  - Urticaria [None]
